FAERS Safety Report 9971754 (Version 1)
Quarter: 2014Q1

REPORT INFORMATION
  Report Type: Spontaneous
  Country: US (occurrence: None)
  Receive Date: 20140305
  Receipt Date: 20140305
  Transmission Date: 20141002
  Serious: Yes (Disabling, Other)
  Sender: FDA-Public Use
  Company Number: None

PATIENT
  Age: 58 Year
  Sex: Female
  Weight: 138.35 kg

DRUGS (1)
  1. LEVOFLOXACIN 750 MG. TORRENT P [Suspect]
     Indication: PNEUMONIA
     Dosage: 1 ONCE DAILY
     Route: 048

REACTIONS (5)
  - Pain in extremity [None]
  - Arthralgia [None]
  - Pain in extremity [None]
  - Gait disturbance [None]
  - Frustration [None]
